FAERS Safety Report 22228644 (Version 1)
Quarter: 2023Q2

REPORT INFORMATION
  Report Type: Spontaneous
  Country: DK (occurrence: DK)
  Receive Date: 20230419
  Receipt Date: 20230419
  Transmission Date: 20230722
  Serious: Yes (Other)
  Sender: FDA-Public Use
  Company Number: None

PATIENT
  Age: 64 Year
  Sex: Female
  Weight: 41 kg

DRUGS (7)
  1. FOSAMAX [Suspect]
     Active Substance: ALENDRONATE SODIUM
     Indication: Osteoporosis
     Dosage: DOSAGE: INTAKE 30 MIN. PRIOR TO BREAKFAST STRENGTH: 70 MG
     Route: 048
     Dates: start: 20040301, end: 20220301
  2. PARACETAMOL ORIFARM [Concomitant]
     Indication: Pain
     Dosage: DOSAGE: MAXIMUM 4 TIMES DAILY STRENGTH: 500 MG
     Route: 048
     Dates: start: 20200319
  3. IBUPROFEN BRIL [Concomitant]
     Indication: Rheumatoid arthritis
     Dosage: DOSAGE: MAXIMUM 3 TIMES DAILY. STRENGTH: 400 MG
     Route: 048
     Dates: start: 20201202
  4. VAGIFEM [Concomitant]
     Active Substance: ESTRADIOL
     Indication: Hormone therapy
     Dosage: STRENGTH: 10 MICROGRAMS
     Route: 067
     Dates: start: 20130819
  5. CALCIUM\CHOLECALCIFEROL [Concomitant]
     Active Substance: CALCIUM\CHOLECALCIFEROL
     Indication: Vitamin supplementation
     Dosage: STRENGTH: 400 MG+19MICROGRAMS
     Route: 048
     Dates: start: 20191025
  6. ATORVASTATIN [Concomitant]
     Active Substance: ATORVASTATIN
     Indication: Hypercholesterolaemia
     Dosage: STRENGTH: 40MG
     Route: 048
     Dates: start: 20201202
  7. HUMIRA [Concomitant]
     Active Substance: ADALIMUMAB
     Indication: Rheumatoid arthritis
     Dosage: STRENGTH: 40 MG/0.4 ML
     Route: 058
     Dates: start: 20180425

REACTIONS (1)
  - Necrosis [Not Recovered/Not Resolved]

NARRATIVE: CASE EVENT DATE: 20211001
